FAERS Safety Report 10419103 (Version 1)
Quarter: 2014Q3

REPORT INFORMATION
  Report Type: Spontaneous
  Country: US (occurrence: US)
  Receive Date: 20140829
  Receipt Date: 20140829
  Transmission Date: 20150326
  Serious: Yes (Other)
  Sender: FDA-Public Use
  Company Number: US-PFIZER INC-2014237211

PATIENT
  Age: 59 Year
  Sex: Female
  Weight: 71.66 kg

DRUGS (2)
  1. LYRICA [Suspect]
     Active Substance: PREGABALIN
     Indication: POSTOPERATIVE CARE
     Dosage: 75 MG, 3X/DAY
     Route: 048
     Dates: start: 20140731
  2. LYRICA [Suspect]
     Active Substance: PREGABALIN
     Indication: NERVE INJURY

REACTIONS (2)
  - Weight increased [Unknown]
  - Procedural pain [Unknown]

NARRATIVE: CASE EVENT DATE: 2014
